FAERS Safety Report 4576719-9 (Version None)
Quarter: 2005Q1

REPORT INFORMATION
  Report Type: 
  Country: None (occurrence: None)
  Receive Date: 20050210
  Receipt Date: 20040929
  Transmission Date: 20050727
  Serious: Yes (Hospitalization, Disabling)
  Sender: FDA-Public Use
  Company Number: 200413086JP

PATIENT
  Age: 33 Year
  Sex: Female
  Weight: 29.7 kg

DRUGS (11)
  1. LASIX [Suspect]
     Indication: OEDEMA PERIPHERAL
     Route: 048
     Dates: start: 19951220, end: 20030227
  2. LASIX [Suspect]
     Indication: SPINAL COMPRESSION FRACTURE
     Route: 048
     Dates: start: 19951220, end: 20030227
  3. GLYCYRON [Suspect]
     Indication: HEPATIC FUNCTION ABNORMAL
     Dosage: DOSE: 3 TABLETS/DAY
     Dates: start: 19941130, end: 20011213
  4. VOLTAREN [Suspect]
     Indication: BACK PAIN
     Dosage: DOSE: 5-7 TABLETS/14HOURS
     Route: 048
     Dates: start: 19960220, end: 20020714
  5. THYRADIN S [Concomitant]
     Indication: HYPOTHYROIDISM
     Dosage: DOSE: 50-150MG/DAY
     Route: 048
     Dates: start: 19941001, end: 20030325
  6. SELBEX [Concomitant]
     Indication: GASTRITIS
     Dosage: DOSE: 45-75MG/DAY
     Route: 048
     Dates: start: 19941130, end: 20020801
  7. ZANTAC [Concomitant]
     Indication: GASTRITIS
     Route: 048
     Dates: start: 20011228
  8. ALDACTONE-A [Concomitant]
     Indication: HYPOKALAEMIA
     Route: 048
     Dates: start: 19970508
  9. SLOW-K [Concomitant]
     Indication: HYPOKALAEMIA
     Dosage: DOSE: 1 TABLET
     Route: 048
     Dates: start: 19970508, end: 20020814
  10. URINORM [Concomitant]
     Indication: HYPERURICAEMIA
     Route: 048
     Dates: start: 19950803, end: 20020814
  11. ALLOPURINOL TAB [Concomitant]
     Indication: HYPERURICAEMIA
     Route: 048
     Dates: start: 20030109

REACTIONS (13)
  - ALCOHOL USE [None]
  - ALCOHOLISM [None]
  - HYPOALDOSTERONISM [None]
  - HYPOKALAEMIA [None]
  - LUMBAR VERTEBRAL FRACTURE [None]
  - METABOLIC ALKALOSIS [None]
  - NEPHRITIS INTERSTITIAL [None]
  - OEDEMA PERIPHERAL [None]
  - POLYP [None]
  - PSEUDO-BARTTER SYNDROME [None]
  - RENAL FAILURE CHRONIC [None]
  - SELF-MEDICATION [None]
  - UNEVALUABLE EVENT [None]
